FAERS Safety Report 22019056 (Version 1)
Quarter: 2023Q1

REPORT INFORMATION
  Report Type: Other
  Country: JP (occurrence: JP)
  Receive Date: 20230222
  Receipt Date: 20230222
  Transmission Date: 20230417
  Serious: Yes (Disabling, Other)
  Sender: FDA-Public Use
  Company Number: JP-DEXPHARM-20230414

PATIENT
  Age: 78 Year
  Sex: Male

DRUGS (3)
  1. LEVODOPA [Suspect]
     Active Substance: LEVODOPA
  2. PRAMIPEXOLE [Interacting]
     Active Substance: PRAMIPEXOLE
  3. DONEPEZIL [Interacting]
     Active Substance: DONEPEZIL

REACTIONS (2)
  - Pleurothotonus [Recovering/Resolving]
  - Drug interaction [Recovering/Resolving]
